FAERS Safety Report 8153411-5 (Version None)
Quarter: 2012Q1

REPORT INFORMATION
  Report Type: 
  Country: None (occurrence: None)
  Receive Date: 20120215
  Receipt Date: 20120130
  Transmission Date: 20120608
  Serious: Yes (Death)
  Sender: FDA-Public Use
  Company Number: CIO12002252

PATIENT
  Age: 32 Year
  Sex: Female
  Weight: 80.7 kg

DRUGS (3)
  1. NYQUIL COLD + FLU ALCOHOL 10% NIGHTTIME RELIEF, FLAVOR UNKNOWN(ETHANOL [Suspect]
     Indication: MALAISE
     Dosage: ORAL
     Route: 048
  2. TYLENOL P.M. (DIPHENHYDRAMINE HYDROCHLORIDE, PARACETAMOL) [Suspect]
     Indication: MALAISE
     Dosage: ORAL
     Route: 048
  3. DULOXETINE HYDROCHLORIDE [Suspect]
     Dosage: ORAL
     Route: 048

REACTIONS (10)
  - BLOOD POTASSIUM INCREASED [None]
  - TUBULOINTERSTITIAL NEPHRITIS [None]
  - BLOOD SODIUM INCREASED [None]
  - TOXICITY TO VARIOUS AGENTS [None]
  - HEPATIC NECROSIS [None]
  - BLOOD GLUCOSE INCREASED [None]
  - ANALGESIC DRUG LEVEL INCREASED [None]
  - PULMONARY OEDEMA [None]
  - ACCIDENTAL DEATH [None]
  - LABELLED DRUG-DRUG INTERACTION MEDICATION ERROR [None]
